FAERS Safety Report 12219862 (Version 1)
Quarter: 2016Q1

REPORT INFORMATION
  Report Type: Spontaneous
  Country: US (occurrence: US)
  Receive Date: 20160330
  Receipt Date: 20160330
  Transmission Date: 20160526
  Serious: Yes (Other)
  Sender: FDA-Public Use
  Company Number: US-PFIZER INC-2016174977

PATIENT
  Age: 55 Year
  Sex: Female
  Weight: 48.53 kg

DRUGS (8)
  1. HYDROCODIN [Concomitant]
     Active Substance: DIHYDROCODEINE BITARTRATE
     Indication: NEUROPATHY PERIPHERAL
     Dosage: HER DOSE WAS INCREASED FROM 7.5/325 AFTER HER FALL
     Dates: end: 201510
  2. HYDROCODIN [Concomitant]
     Active Substance: DIHYDROCODEINE BITARTRATE
     Indication: PAIN
     Dosage: 10MG TWICE A DAY
  3. SOMA [Concomitant]
     Active Substance: CARISOPRODOL
     Indication: MUSCLE RELAXANT THERAPY
     Dosage: TWICE A DAY
  4. LYRICA [Suspect]
     Active Substance: PREGABALIN
     Indication: NEUROPATHY PERIPHERAL
     Dosage: ONCE DAILY
     Route: 048
  5. AMITRIPTYLINE [Concomitant]
     Active Substance: AMITRIPTYLINE
     Indication: NEUROPATHY PERIPHERAL
     Dosage: 25MG AT BED TIME
  6. LYRICA [Suspect]
     Active Substance: PREGABALIN
     Dosage: 75MG, CAPSULE, 2 TIMES A DAY/PRESCRIBED LYRICA TWICE A DAY BUT HAD NOT TAKEN IT FOR ALMOST 2 WEEKS
     Route: 048
  7. SOMA [Concomitant]
     Active Substance: CARISOPRODOL
     Dosage: DOSAGE INCREASED RECENTLY TO 3 TIMES PER DAY
  8. LYRICA [Suspect]
     Active Substance: PREGABALIN
     Dosage: THE DOSE WAS INCREASED TO 3 TIMES A DAY
     Route: 048

REACTIONS (9)
  - Fall [Unknown]
  - Nerve injury [Unknown]
  - Muscle strain [Unknown]
  - Musculoskeletal disorder [Unknown]
  - Intentional product misuse [Unknown]
  - Hypoaesthesia [Unknown]
  - Drug dose omission [Unknown]
  - Pain in extremity [Unknown]
  - Product use issue [Unknown]

NARRATIVE: CASE EVENT DATE: 201508
